FAERS Safety Report 9256919 (Version 2)
Quarter: 2014Q1

REPORT INFORMATION
  Report Type: Spontaneous
  Country: US (occurrence: US)
  Receive Date: 20130426
  Receipt Date: 20140103
  Transmission Date: 20141002
  Serious: Yes (Hospitalization, Other)
  Sender: FDA-Public Use
  Company Number: US-ASTRAZENECA-2013SE27806

PATIENT
  Age: 39 Year
  Sex: Female
  Weight: 68 kg

DRUGS (26)
  1. NEXIUM [Suspect]
     Indication: GASTROOESOPHAGEAL REFLUX DISEASE
     Route: 048
     Dates: start: 1998, end: 2002
  2. NEXIUM [Suspect]
     Indication: GASTROOESOPHAGEAL REFLUX DISEASE
     Route: 048
     Dates: start: 20050523
  3. PREVACID [Concomitant]
     Dosage: DAILY
     Dates: start: 1998, end: 2002
  4. TAGAMET [Concomitant]
     Indication: GASTROOESOPHAGEAL REFLUX DISEASE
     Dosage: TWICE DAILY
     Dates: start: 1970
  5. TUMS [Concomitant]
     Dosage: AS NEEDED EVERY DAY
     Dates: start: 1998
  6. ROLAIDS [Concomitant]
     Dosage: AS NEEDED EVERY DAY
     Dates: start: 1998
  7. PEPTO BISMOL [Concomitant]
     Dosage: AS NEEDED EVERY DAY
     Dates: start: 1998
  8. MYLANTA [Concomitant]
     Dosage: AS NEEDED EVERY DAY
     Dates: start: 1998
  9. HYDROCODONE [Concomitant]
     Indication: PAIN
     Dosage: 7.5 MG AS NEEDED
  10. PROMETHAZINE [Concomitant]
     Indication: NAUSEA
  11. PROMETHAZINE [Concomitant]
     Indication: VOMITING
  12. AMBIEN [Concomitant]
     Indication: SLEEP DISORDER
  13. AMITRIPTYLINE [Concomitant]
     Indication: PAIN
  14. CARVEDILOL [Concomitant]
     Indication: CARDIOVASCULAR EVENT PROPHYLAXIS
  15. CHLORPROMAZINE [Concomitant]
     Indication: SLEEP DISORDER
  16. CHLORPROMAZINE [Concomitant]
     Indication: SLEEP DISORDER
  17. CLOPIDOQREL [Concomitant]
     Indication: ANTICOAGULANT THERAPY
  18. DETROL [Concomitant]
     Indication: BLADDER DISORDER
  19. LEVOTHYROXINE [Concomitant]
     Indication: THYROID DISORDER
  20. LOVAZA [Concomitant]
     Indication: BLOOD CHOLESTEROL ABNORMAL
  21. METHOCARBAMOL [Concomitant]
     Indication: MUSCLE DISORDER
  22. PHENYTOIN [Concomitant]
     Indication: CONVULSION
  23. SERTRALINE [Concomitant]
     Indication: ANXIETY
  24. SIMVASTATIN [Concomitant]
     Indication: BLOOD CHOLESTEROL ABNORMAL
  25. TRAMADOL [Concomitant]
     Indication: PAIN
  26. TRAZODONE [Concomitant]
     Indication: DEPRESSION

REACTIONS (16)
  - Spinal fracture [Unknown]
  - Convulsion [Unknown]
  - Cerebrovascular accident [Unknown]
  - Ulcer haemorrhage [Unknown]
  - Myocardial infarction [Unknown]
  - Fall [Unknown]
  - Osteoporosis [Unknown]
  - Thoracic vertebral fracture [Unknown]
  - Foot fracture [Unknown]
  - Upper limb fracture [Unknown]
  - Bone disorder [Unknown]
  - Pyrexia [Unknown]
  - Asthma [Unknown]
  - Vitamin D deficiency [Unknown]
  - Osteoarthritis [Unknown]
  - Vomiting [Unknown]
